FAERS Safety Report 7651166-1 (Version None)
Quarter: 2011Q3

REPORT INFORMATION
  Report Type: 
  Country: None (occurrence: None)
  Receive Date: 20110802
  Receipt Date: 20110722
  Transmission Date: 20111222
  Serious: Yes (Other)
  Sender: FDA-Public Use
  Company Number: US-JNJFOC-20110710069

PATIENT
  Sex: Female

DRUGS (2)
  1. REMICADE [Suspect]
     Indication: RHEUMATOID ARTHRITIS
     Dosage: 2 INDUCTION DOSES ON UNSPECIFIED DATES
     Route: 042
     Dates: start: 20110101, end: 20110101
  2. METHOTREXATE [Concomitant]

REACTIONS (1)
  - HERPES OPHTHALMIC [None]
